FAERS Safety Report 4474158-2 (Version None)
Quarter: 2004Q4

REPORT INFORMATION
  Report Type: 
  Country: None (occurrence: None)
  Receive Date: 20041008
  Receipt Date: 20040924
  Transmission Date: 20050328
  Serious: Yes (Disabling)
  Sender: FDA-Public Use
  Company Number: 8943

PATIENT
  Age: 12 Year
  Sex: Female

DRUGS (3)
  1. METHOTREXATE [Suspect]
     Indication: ACUTE LYMPHOCYTIC LEUKAEMIA
     Route: 042
     Dates: start: 19950201, end: 19970601
  2. CYTARABINE [Concomitant]
  3. HYDROCORTISONE [Concomitant]

REACTIONS (8)
  - BALANCE DISORDER [None]
  - COGNITIVE DETERIORATION [None]
  - COMPLEX PARTIAL SEIZURES [None]
  - CONFUSIONAL STATE [None]
  - CRYING [None]
  - DEMYELINATION [None]
  - DRUG EFFECT DECREASED [None]
  - DYSARTHRIA [None]
